FAERS Safety Report 25427511 (Version 1)
Quarter: 2025Q2

REPORT INFORMATION
  Report Type: Spontaneous
  Country: US (occurrence: US)
  Receive Date: 20250612
  Receipt Date: 20250612
  Transmission Date: 20250717
  Serious: Yes (Hospitalization)
  Sender: AMGEN
  Company Number: US-AMGEN-USASP2025112870

PATIENT
  Sex: Female

DRUGS (8)
  1. EVENITY [Suspect]
     Active Substance: ROMOSOZUMAB-AQQG
     Indication: Bone disorder
     Dosage: 210 MILLIGRAM, QMO
     Route: 058
     Dates: start: 20250325
  2. EVENITY [Suspect]
     Active Substance: ROMOSOZUMAB-AQQG
     Indication: Off label use
  3. ATENOLOL [Concomitant]
     Active Substance: ATENOLOL
     Indication: Heart rate irregular
     Route: 058
  4. ATENOLOL [Concomitant]
     Active Substance: ATENOLOL
     Indication: Heart rate increased
  5. ATENOLOL [Concomitant]
     Active Substance: ATENOLOL
     Indication: Blood pressure abnormal
  6. LOSARTAN [Concomitant]
     Active Substance: LOSARTAN
     Indication: Heart rate irregular
     Route: 058
  7. LOSARTAN [Concomitant]
     Active Substance: LOSARTAN
     Indication: Blood pressure measurement
  8. LOSARTAN [Concomitant]
     Active Substance: LOSARTAN
     Indication: Heart rate increased

REACTIONS (4)
  - Spinal operation [Unknown]
  - Heart rate increased [Unknown]
  - Heart rate irregular [Not Recovered/Not Resolved]
  - Off label use [Unknown]

NARRATIVE: CASE EVENT DATE: 20250101
